FAERS Safety Report 10954812 (Version 1)
Quarter: 2015Q1

REPORT INFORMATION
  Report Type: Spontaneous
  Country: US (occurrence: None)
  Receive Date: 20150226
  Receipt Date: 20150226
  Transmission Date: 20150721
  Serious: Yes (Other)
  Sender: FDA-Public Use
  Company Number: TPA2009A04118

PATIENT
  Age: 41 Year
  Sex: Male
  Weight: 100 kg

DRUGS (3)
  1. PEGASYS [Suspect]
     Active Substance: PEGINTERFERON ALFA-2A
     Indication: HEPATITIS C
     Route: 058
     Dates: start: 200808, end: 200910
  2. COPEGUS [Suspect]
     Active Substance: RIBAVIRIN
     Indication: HEPATITIS C
     Route: 048
     Dates: start: 200808
  3. ACTOS [Suspect]
     Active Substance: PIOGLITAZONE HYDROCHLORIDE
     Indication: PRODUCT USED FOR UNKNOWN INDICATION
     Route: 048
     Dates: start: 200808

REACTIONS (6)
  - White blood cell count decreased [None]
  - Deafness bilateral [None]
  - Blood iron increased [None]
  - Anaemia [None]
  - Nausea [None]
  - Headache [None]

NARRATIVE: CASE EVENT DATE: 200808
